FAERS Safety Report 5055068-9 (Version None)
Quarter: 2006Q2

REPORT INFORMATION
  Report Type: 
  Country: None (occurrence: None)
  Receive Date: 20060616
  Receipt Date: 20060404
  Transmission Date: 20061013
  Serious: No
  Sender: FDA-Public Use
  Company Number: 2006US000770

PATIENT
  Age: 77 Year
  Sex: Female

DRUGS (6)
  1. VESICARE [Suspect]
     Indication: INCONTINENCE
     Dosage: 5 MG, ORAL
     Route: 048
     Dates: start: 20051226
  2. PREMARIIN (ESTROGENS CONJUGATED) [Concomitant]
  3. LEVOXYL [Concomitant]
  4. INDERAL [Concomitant]
  5. LOVASTATIN [Concomitant]
  6. MICARDIS [Concomitant]

REACTIONS (1)
  - VISION BLURRED [None]
